FAERS Safety Report 17090692 (Version 1)
Quarter: 2019Q4

REPORT INFORMATION
  Report Type: Spontaneous
  Country: CA (occurrence: CA)
  Receive Date: 20191129
  Receipt Date: 20191129
  Transmission Date: 20200122
  Serious: Yes (Death, Life-Threatening, Hospitalization, Other)
  Sender: FDA-Public Use
  Company Number: CA-AMGEN-CANSP2019195822

PATIENT

DRUGS (2)
  1. CYCLOPHOSPHAMIDE. [Concomitant]
     Active Substance: CYCLOPHOSPHAMIDE
     Indication: PLASMA CELL MYELOMA
     Dosage: UNK
  2. FILGRASTIM [Suspect]
     Active Substance: FILGRASTIM
     Indication: HAEMATOPOIETIC STEM CELL MOBILISATION
     Dosage: 5 MICROGRAM/KILOGRAM PER DAY (FOR FOUR DAYS ALONE) AND (TWO DAYS AFTER CTX)
     Route: 058

REACTIONS (14)
  - Thrombocytopenia [Unknown]
  - Pyrexia [Unknown]
  - Febrile neutropenia [Unknown]
  - Pneumonia [Unknown]
  - Death [Fatal]
  - Plasma cell myeloma recurrent [Unknown]
  - Therapy non-responder [Unknown]
  - Hyponatraemia [Unknown]
  - Amegakaryocytic thrombocytopenia [Unknown]
  - Skin infection [Unknown]
  - Bone pain [Unknown]
  - Neutropenia [Unknown]
  - Cytopenia [Unknown]
  - Adverse event [Unknown]
